FAERS Safety Report 8647993 (Version 7)
Quarter: 2012Q4

REPORT INFORMATION
  Report Type: 
  Country: JP (occurrence: JP)
  Receive Date: 20120703
  Receipt Date: 20120908
  Transmission Date: 20130627
  Serious: Yes (Hospitalization)
  Sender: FDA-Public Use
  Company Number: JP-ABBOTT-12P-087-0950667-00

PATIENT
  Age: 26 Year
  Sex: Male
  Weight: 58 kg

DRUGS (5)
  1. KLARICID [Suspect]
     Indication: HELICOBACTER INFECTION
     Route: 048
     Dates: start: 20120104, end: 20120110
  2. TAKEPRON [Suspect]
     Indication: HELICOBACTER INFECTION
     Route: 048
     Dates: start: 20120104, end: 20120110
  3. PASETOCIN [Suspect]
     Indication: HELICOBACTER INFECTION
     Route: 048
     Dates: start: 20120104, end: 20120110
  4. ANTIBIOTICS-RESISTANT LACTIC ACID BACTERIAE [Concomitant]
     Indication: PROPHYLAXIS AGAINST DIARRHOEA
     Route: 048
     Dates: start: 20120104, end: 20120110
  5. GASTER [Concomitant]
     Indication: GASTROOESOPHAGEAL REFLUX DISEASE
     Route: 048
     Dates: start: 20120111, end: 20120119

REACTIONS (1)
  - Pseudomembranous colitis [Recovered/Resolved]
